FAERS Safety Report 10224456 (Version 1)
Quarter: 2014Q2

REPORT INFORMATION
  Report Type: Spontaneous
  Country: GB (occurrence: GB)
  Receive Date: 20140609
  Receipt Date: 20140609
  Transmission Date: 20141212
  Serious: Yes (Other)
  Sender: FDA-Public Use
  Company Number: GB-PFIZER INC-2014151418

PATIENT
  Age: 73 Year
  Sex: Female

DRUGS (2)
  1. AMLODIPINE BESILATE [Suspect]
     Indication: HYPERTENSION
     Dosage: 5 MG, UNK
     Route: 048
     Dates: start: 20140415, end: 20140502
  2. ADCAL-D3 [Concomitant]
     Dosage: UNK
     Route: 048

REACTIONS (2)
  - Back pain [Recovering/Resolving]
  - Muscular weakness [Recovering/Resolving]
